FAERS Safety Report 4706459-4 (Version None)
Quarter: 2005Q3

REPORT INFORMATION
  Report Type: 
  Country: None (occurrence: None)
  Receive Date: 20050705
  Receipt Date: 20050531
  Transmission Date: 20060218
  Serious: Yes (Other)
  Sender: FDA-Public Use
  Company Number: CA-GLAXOSMITHKLINE-A0564879A

PATIENT

DRUGS (6)
  1. PAXIL [Suspect]
     Indication: DRUG USE FOR UNKNOWN INDICATION
     Route: 048
  2. WELLBUTRIN SR [Suspect]
     Indication: DRUG USE FOR UNKNOWN INDICATION
     Route: 048
  3. BROMAZEPAM [Concomitant]
  4. LOSEC [Concomitant]
  5. STARNOC [Concomitant]
  6. ZOPICLONE [Concomitant]

REACTIONS (2)
  - LENTICULAR OPACITIES [None]
  - MYOPIA [None]
